FAERS Safety Report 17721005 (Version 1)
Quarter: 2020Q2

REPORT INFORMATION
  Report Type: Spontaneous
  Country: US (occurrence: US)
  Receive Date: 20200428
  Receipt Date: 20200428
  Transmission Date: 20200714
  Serious: Yes (Other)
  Sender: FDA-Public Use
  Company Number: US-ROCHE-2330105

PATIENT
  Sex: Female
  Weight: 53.57 kg

DRUGS (7)
  1. DOXORUBICIN [Suspect]
     Active Substance: DOXORUBICIN
     Indication: OVARIAN CANCER
     Dosage: ONGOING:NO
     Route: 065
     Dates: start: 2016
  2. AVASTIN [Suspect]
     Active Substance: BEVACIZUMAB
     Indication: OVARIAN CANCER
     Route: 042
     Dates: start: 2011
  3. PACLITAXEL. [Suspect]
     Active Substance: PACLITAXEL
     Indication: OVARIAN CANCER
     Dosage: ONGOING:NO
     Route: 065
     Dates: start: 2011
  4. PACLITAXEL. [Suspect]
     Active Substance: PACLITAXEL
     Route: 065
     Dates: start: 201810, end: 2019
  5. AVASTIN [Suspect]
     Active Substance: BEVACIZUMAB
     Route: 042
     Dates: start: 201810
  6. CARBOPLATIN. [Suspect]
     Active Substance: CARBOPLATIN
     Indication: OVARIAN CANCER
     Dosage: ONGOING:NO
     Route: 065
     Dates: start: 2011
  7. CARBOPLATIN. [Suspect]
     Active Substance: CARBOPLATIN
     Dosage: ONGOING: NO
     Route: 065
     Dates: start: 201810, end: 2019

REACTIONS (3)
  - Urinary tract infection [Recovered/Resolved]
  - Alopecia [Recovered/Resolved]
  - Post-traumatic stress disorder [Unknown]

NARRATIVE: CASE EVENT DATE: 2016
